FAERS Safety Report 7007745-8 (Version None)
Quarter: 2010Q3

REPORT INFORMATION
  Report Type: 
  Country: None (occurrence: None)
  Receive Date: 20100922
  Receipt Date: 20100917
  Transmission Date: 20110219
  Serious: Yes (Death)
  Sender: FDA-Public Use
  Company Number: CO-WYE-H17601710

PATIENT
  Sex: Male

DRUGS (2)
  1. RAPAMUNE [Suspect]
     Dosage: 1 MG TABLET (FREQUENCY NOT SPECIFIED)
     Route: 048
  2. MYCOPHENOLATE MOFETIL [Concomitant]

REACTIONS (1)
  - DEATH [None]
